FAERS Safety Report 8271416-0 (Version None)
Quarter: 2012Q2

REPORT INFORMATION
  Report Type: 
  Country: None (occurrence: None)
  Receive Date: 20120410
  Receipt Date: 20120403
  Transmission Date: 20120825
  Serious: Yes (Other)
  Sender: FDA-Public Use
  Company Number: PHEH2011US02879

PATIENT
  Sex: Female
  Weight: 113.38 kg

DRUGS (8)
  1. AMANTADINE HCL [Concomitant]
     Dosage: 100 MG, BID
  2. LYRICA [Concomitant]
     Dosage: 300 MG, IN PM
  3. NUVIGIL [Concomitant]
     Indication: FATIGUE
     Dosage: 250 MG, QD
     Route: 048
     Dates: start: 20110408
  4. GILENYA [Suspect]
     Indication: MULTIPLE SCLEROSIS
     Dosage: 0.5 MG, QD
     Route: 048
     Dates: start: 20110628
  5. VITAMIN B-12 [Concomitant]
     Indication: VITAMIN B12 DEFICIENCY
     Route: 030
     Dates: start: 20100701
  6. SYMBICORT [Concomitant]
     Indication: ASTHMA
     Dates: start: 20110401
  7. LYRICA [Concomitant]
     Indication: NEURALGIA
     Dosage: 150 MG, IN AM
     Route: 048
     Dates: start: 20100701
  8. ORTHO-NOVUM [Concomitant]
     Indication: CONTRACEPTION

REACTIONS (11)
  - HEART RATE INCREASED [None]
  - MULTIPLE SCLEROSIS RELAPSE [None]
  - MUSCLE SPASMS [None]
  - BLOOD PRESSURE INCREASED [None]
  - HEADACHE [None]
  - BLINDNESS UNILATERAL [None]
  - VISION BLURRED [None]
  - CHEST PAIN [None]
  - DIZZINESS [None]
  - VISUAL FIELD DEFECT [None]
  - VISUAL ACUITY REDUCED [None]
